FAERS Safety Report 7460917-0 (Version None)
Quarter: 2011Q2

REPORT INFORMATION
  Report Type: 
  Country: None (occurrence: None)
  Receive Date: 20110505
  Receipt Date: 20110421
  Transmission Date: 20111010
  Serious: Yes (Other)
  Sender: FDA-Public Use
  Company Number: US-AMGEN-USASP2011021151

PATIENT
  Age: 11 Year
  Sex: Female

DRUGS (1)
  1. ENBREL [Suspect]
     Indication: JUVENILE ARTHRITIS
     Dosage: 25 MG, QWK
     Dates: start: 20090109

REACTIONS (7)
  - PARAESTHESIA [None]
  - PAIN [None]
  - INFLUENZA [None]
  - EAR INFECTION [None]
  - ASTHENIA [None]
  - HYPOAESTHESIA [None]
  - PHARYNGITIS STREPTOCOCCAL [None]
